FAERS Safety Report 6123578-9 (Version None)
Quarter: 2009Q1

REPORT INFORMATION
  Report Type: 
  Country: None (occurrence: None)
  Receive Date: 20090318
  Receipt Date: 20090318
  Transmission Date: 20090719
  Serious: Yes (Hospitalization)
  Sender: FDA-Public Use
  Company Number: None

PATIENT
  Sex: Male
  Weight: 104.5 kg

DRUGS (10)
  1. THALIDOMIDE [Suspect]
     Indication: PROSTATE CANCER METASTATIC
     Dosage: 50MG TWO 50MG QHS PO
     Route: 048
     Dates: start: 20090218, end: 20090310
  2. DOXORUBICIN HCL [Suspect]
     Indication: PROSTATE CANCER METASTATIC
     Dosage: 40MG/M2 82MG IV
     Route: 042
     Dates: start: 20090218
  3. METOPROLOL TARTRATE [Concomitant]
  4. SOTALOL HYDROCHLORIDE [Concomitant]
  5. ASPIRIN [Concomitant]
  6. ZOCOR [Concomitant]
  7. COUMADIN [Concomitant]
  8. ZOLADEX [Concomitant]
  9. MULTI-VITAMIN [Concomitant]
  10. PREDNISONE [Concomitant]

REACTIONS (3)
  - HAEMOPTYSIS [None]
  - OEDEMA PERIPHERAL [None]
  - PNEUMONIA [None]
